FAERS Safety Report 5106055-3 (Version None)
Quarter: 2006Q3

REPORT INFORMATION
  Report Type: 
  Country: None (occurrence: None)
  Receive Date: 20060915
  Receipt Date: 20060822
  Transmission Date: 20061208
  Serious: Yes (Death, Hospitalization)
  Sender: FDA-Public Use
  Company Number: PT-ABBOTT-06P-130-0341592-00

PATIENT
  Age: 75 Year
  Sex: Female

DRUGS (5)
  1. HUMIRA [Suspect]
     Indication: RHEUMATOID ARTHRITIS
     Dates: start: 20060101, end: 20060726
  2. NAPROXEN [Concomitant]
     Indication: DRUG USE FOR UNKNOWN INDICATION
  3. ALENDRONIC ACID [Concomitant]
     Indication: DRUG USE FOR UNKNOWN INDICATION
  4. PREDNISONE TAB [Concomitant]
     Indication: DRUG USE FOR UNKNOWN INDICATION
  5. METHOTREXATE [Concomitant]
     Indication: DRUG USE FOR UNKNOWN INDICATION

REACTIONS (12)
  - ABDOMINAL PAIN [None]
  - ASTHENIA [None]
  - BACK PAIN [None]
  - BILE DUCT STENOSIS [None]
  - BILIARY DILATATION [None]
  - GASTRIC POLYPS [None]
  - HYPERHIDROSIS [None]
  - HYPOTENSION [None]
  - INJECTION SITE REACTION [None]
  - LABORATORY TEST ABNORMAL [None]
  - PROSTRATION [None]
  - TACHYCARDIA [None]
